FAERS Safety Report 6968998-5 (Version None)
Quarter: 2010Q3

REPORT INFORMATION
  Report Type: 
  Country: None (occurrence: None)
  Receive Date: 20100907
  Receipt Date: 20100826
  Transmission Date: 20110219
  Serious: Yes (Other)
  Sender: FDA-Public Use
  Company Number: US-SANOFI-AVENTIS-2010SA051817

PATIENT
  Age: 79 Year
  Sex: Female
  Weight: 64 kg

DRUGS (3)
  1. LANTUS [Suspect]
     Indication: TYPE 2 DIABETES MELLITUS
     Dosage: DOSE:40 UNIT(S)
     Route: 058
     Dates: start: 20070101
  2. OPTICLICK [Suspect]
     Indication: TYPE 2 DIABETES MELLITUS
     Dates: start: 20070101
  3. NOVOLIN 70/30 [Concomitant]
     Indication: TYPE 2 DIABETES MELLITUS

REACTIONS (8)
  - ARTHRALGIA [None]
  - CONTUSION [None]
  - DIABETES MELLITUS INADEQUATE CONTROL [None]
  - FALL [None]
  - INCORRECT STORAGE OF DRUG [None]
  - NAUSEA [None]
  - PAIN IN EXTREMITY [None]
  - VOMITING [None]
